FAERS Safety Report 8873362 (Version 4)
Quarter: 2013Q1

REPORT INFORMATION
  Report Type: Spontaneous
  Country: US (occurrence: US)
  Receive Date: 20121030
  Receipt Date: 20130103
  Transmission Date: 20140127
  Serious: Yes (Hospitalization, Other)
  Sender: FDA-Public Use
  Company Number: US-009507513-1012USA03391

PATIENT
  Sex: 0

DRUGS (13)
  1. FOSAMAX [Suspect]
     Indication: OSTEOPOROSIS
     Dosage: 70 MG, QW
     Route: 048
     Dates: start: 200112, end: 200802
  2. FOSAMAX [Suspect]
     Indication: OSTEOPOROSIS
     Dosage: UNK, QW
     Route: 048
     Dates: start: 200803, end: 201004
  3. PREVACID [Concomitant]
     Indication: GASTROOESOPHAGEAL REFLUX DISEASE
     Dosage: UNK
     Dates: start: 2001
  4. XANAX [Concomitant]
     Indication: POST-TRAUMATIC STRESS DISORDER
     Dosage: UNK
     Dates: start: 2001
  5. SEROQUEL [Concomitant]
     Indication: ANXIETY
     Dosage: UNK
     Dates: start: 2001
  6. ASPIRIN [Concomitant]
     Indication: CARDIAC DISORDER
     Dosage: UNK
     Dates: start: 2001
  7. ROBAXIN [Concomitant]
     Indication: MUSCLE SPASMS
     Dosage: UNK
     Dates: start: 2000
  8. FLEXERIL [Concomitant]
     Dosage: UNK
     Dates: start: 2001
  9. ESTRADIOL [Concomitant]
     Indication: HORMONE REPLACEMENT THERAPY
     Dosage: UNK
     Dates: start: 2001, end: 2003
  10. ATACAND [Concomitant]
     Indication: HYPERTENSION
     Dosage: UNK
     Dates: start: 2001
  11. ASTELIN (AZELASTINE HYDROCHLORIDE) [Concomitant]
     Indication: HYPERSENSITIVITY
     Dosage: UNK
     Route: 045
     Dates: start: 2001, end: 2003
  12. NASACORT [Concomitant]
     Indication: HYPERSENSITIVITY
     Dosage: UNK
     Dates: start: 2001, end: 2003
  13. ALENDRONATE SODIUM [Suspect]
     Dosage: 70 MG, QW
     Route: 048

REACTIONS (74)
  - Femur fracture [Unknown]
  - Fall [Unknown]
  - Intramedullary rod insertion [Unknown]
  - Impaired healing [Unknown]
  - Cardiac disorder [Unknown]
  - Parathyroidectomy [Unknown]
  - Thyroidectomy [Unknown]
  - Skin implant [Unknown]
  - Squamous cell carcinoma [Unknown]
  - Surgery [Unknown]
  - Surgery [Unknown]
  - Breast lump removal [Unknown]
  - Neck plastic surgery [Unknown]
  - Skin ulcer [Unknown]
  - Open reduction of fracture [Unknown]
  - Ureteral stent insertion [Unknown]
  - Hypothyroidism [Unknown]
  - Kidney infection [Unknown]
  - Sciatica [Unknown]
  - Device related infection [Unknown]
  - Calcium deficiency [Unknown]
  - Vitamin D deficiency [Unknown]
  - Spinal deformity [Unknown]
  - Muscle atrophy [Unknown]
  - Depression [Unknown]
  - Agoraphobia [Unknown]
  - Benign breast neoplasm [Unknown]
  - Asthma [Unknown]
  - Nasal septum deviation [Unknown]
  - Angiopathy [Unknown]
  - Stent placement [Unknown]
  - Angioplasty [Unknown]
  - Anxiety [Unknown]
  - Pain in extremity [Unknown]
  - Arthralgia [Unknown]
  - Nephrolithiasis [Not Recovered/Not Resolved]
  - Breast cyst drainage [Unknown]
  - Urethral stent insertion [Unknown]
  - Intervertebral disc degeneration [Not Recovered/Not Resolved]
  - Abasia [Unknown]
  - Debridement [Unknown]
  - Peripheral artery stenosis [Unknown]
  - Skin graft [Not Recovered/Not Resolved]
  - Wound closure [Unknown]
  - Skin ulcer [Unknown]
  - Pyrexia [Unknown]
  - Hypertension [Unknown]
  - Asthma [Not Recovered/Not Resolved]
  - Vomiting [Unknown]
  - Diarrhoea [Unknown]
  - Hypotension [Unknown]
  - Hypertension [Not Recovered/Not Resolved]
  - Irritable bowel syndrome [Unknown]
  - Nerve injury [Unknown]
  - Cervical cord compression [Unknown]
  - Intervertebral disc protrusion [Unknown]
  - Diverticulum [Unknown]
  - Parathyroid tumour benign [Unknown]
  - Hypokalaemia [Unknown]
  - Temporomandibular joint syndrome [Unknown]
  - Osteopenia [Unknown]
  - Neuropathy peripheral [Unknown]
  - Bronchitis [Not Recovered/Not Resolved]
  - Road traffic accident [Unknown]
  - Wound infection [Not Recovered/Not Resolved]
  - Wound [Not Recovered/Not Resolved]
  - Cardiovascular disorder [Unknown]
  - Internal fixation of fracture [Unknown]
  - Post-traumatic stress disorder [Unknown]
  - Ureteral stent removal [Unknown]
  - Lithotripsy [Unknown]
  - Tooth fracture [Unknown]
  - Hypotension [Unknown]
  - Hyperparathyroidism [Unknown]
